FAERS Safety Report 12895206 (Version 1)
Quarter: 2016Q4

REPORT INFORMATION
  Report Type: Spontaneous
  Country: FR (occurrence: FR)
  Receive Date: 20161029
  Receipt Date: 20161029
  Transmission Date: 20170207
  Serious: Yes (Hospitalization)
  Sender: FDA-Public Use
  Company Number: FR-ASTRAZENECA-2016SF12035

PATIENT
  Age: 27529 Day
  Sex: Female

DRUGS (6)
  1. ESOMEPRAZOLE [Suspect]
     Active Substance: ESOMEPRAZOLE
     Route: 048
     Dates: start: 20160720
  2. PRAVASTATIN. [Concomitant]
     Active Substance: PRAVASTATIN
     Indication: DYSLIPIDAEMIA
     Route: 048
  3. BYDUREON [Suspect]
     Active Substance: EXENATIDE
     Indication: TYPE 2 DIABETES MELLITUS
     Route: 058
     Dates: start: 20160620, end: 20160808
  4. METFORMINE [Suspect]
     Active Substance: METFORMIN HYDROCHLORIDE
     Indication: TYPE 2 DIABETES MELLITUS
     Dosage: 1G TWICE A DAY  (NON AZ PRODUCT)
     Route: 048
     Dates: end: 20160906
  5. ASPIRIN. [Concomitant]
     Active Substance: ASPIRIN
     Route: 048
  6. NISISCO [Concomitant]
     Active Substance: HYDROCHLOROTHIAZIDE\VALSARTAN
     Indication: HYPERTENSION
     Route: 048

REACTIONS (3)
  - Gastrooesophageal reflux disease [Unknown]
  - Renal failure [Recovering/Resolving]
  - Weight decreased [Not Recovered/Not Resolved]

NARRATIVE: CASE EVENT DATE: 20160620
